FAERS Safety Report 7788219-3 (Version None)
Quarter: 2011Q3

REPORT INFORMATION
  Report Type: 
  Country: None (occurrence: None)
  Receive Date: 20110927
  Receipt Date: 20110913
  Transmission Date: 20111222
  Serious: Yes (Hospitalization)
  Sender: FDA-Public Use
  Company Number: 2011MA013464

PATIENT
  Age: 24 Year
  Sex: Male

DRUGS (1)
  1. FLUOXETINE [Suspect]
     Indication: PREMATURE EJACULATION
     Dosage: 20 MG

REACTIONS (1)
  - OESOPHAGITIS ULCERATIVE [None]
